FAERS Safety Report 17216597 (Version 3)
Quarter: 2020Q1

REPORT INFORMATION
  Report Type: Report from Study
  Country: BE (occurrence: BE)
  Receive Date: 20191230
  Receipt Date: 20200127
  Transmission Date: 20200409
  Serious: Yes (Hospitalization)
  Sender: FDA-Public Use
  Company Number: BE-BEH-2019111144

PATIENT
  Age: 6 Year
  Sex: Female

DRUGS (1)
  1. HIZENTRA [Suspect]
     Active Substance: HUMAN IMMUNOGLOBULIN G
     Indication: PRODUCT USED FOR UNKNOWN INDICATION
     Dosage: UNK, QW
     Route: 058
     Dates: start: 20180604

REACTIONS (8)
  - No adverse event [Unknown]
  - Bacterial infection [Recovered/Resolved]
  - Cardiac disorder [Recovered/Resolved]
  - Multi-organ disorder [Recovered/Resolved]
  - Pneumonia [Recovered/Resolved]
  - Therapy change [Unknown]
  - Malaise [Recovered/Resolved]
  - Inflammation [Recovering/Resolving]

NARRATIVE: CASE EVENT DATE: 201911
